FAERS Safety Report 13898725 (Version 1)
Quarter: 2017Q3

REPORT INFORMATION
  Report Type: Spontaneous
  Country: US (occurrence: None)
  Receive Date: 20170817
  Receipt Date: 20170817
  Transmission Date: 20171127
  Serious: Yes (Hospitalization)
  Sender: FDA-Public Use
  Company Number: None

PATIENT
  Age: 77 Year
  Sex: Male
  Weight: 83.64 kg

DRUGS (2)
  1. COLCHICINE. [Suspect]
     Active Substance: COLCHICINE
     Indication: GOUT
     Dates: start: 20170413, end: 20170609
  2. SIMVASTATIN. [Suspect]
     Active Substance: SIMVASTATIN
     Indication: HYPERLIPIDAEMIA
     Route: 048

REACTIONS (5)
  - Asthenia [None]
  - Acute kidney injury [None]
  - Rhabdomyolysis [None]
  - Failure to thrive [None]
  - Myalgia [None]

NARRATIVE: CASE EVENT DATE: 20170609
